FAERS Safety Report 20345891 (Version 1)
Quarter: 2022Q1

REPORT INFORMATION
  Report Type: Spontaneous
  Country: US (occurrence: None)
  Receive Date: 20220117
  Receipt Date: 20220117
  Transmission Date: 20220423
  Serious: Yes (Hospitalization)
  Sender: FDA-Public Use
  Company Number: None

PATIENT
  Sex: Male

DRUGS (12)
  1. ABIRATERONE ACETATE [Suspect]
     Active Substance: ABIRATERONE ACETATE
     Indication: Prostate cancer
     Dosage: FREQUENCY : DAILY;?
     Route: 048
     Dates: start: 20200130
  2. ABIRATERONE [Suspect]
     Active Substance: ABIRATERONE
  3. AMLODIPINE [Suspect]
     Active Substance: AMLODIPINE BESYLATE
  4. FUROSEMIDE [Suspect]
     Active Substance: FUROSEMIDE
  5. ACETAMINOPHEN\HYDROCODONE [Suspect]
     Active Substance: ACETAMINOPHEN\HYDROCODONE
  6. LISINOPRIL [Suspect]
     Active Substance: LISINOPRIL
  7. LISINOPRIL [Suspect]
     Active Substance: LISINOPRIL
  8. OMEPRAZOLE [Suspect]
     Active Substance: OMEPRAZOLE
  9. OXYBUTYNIN [Suspect]
     Active Substance: OXYBUTYNIN
  10. POTASSIUM CHLORIDE [Suspect]
     Active Substance: POTASSIUM CHLORIDE
  11. PREDNISONE [Suspect]
     Active Substance: PREDNISONE
  12. ROSUVASTATIN [Suspect]
     Active Substance: ROSUVASTATIN

REACTIONS (2)
  - Cerebrovascular accident [None]
  - Therapy interrupted [None]
